FAERS Safety Report 5885152-9 (Version None)
Quarter: 2008Q3

REPORT INFORMATION
  Report Type: 
  Country: None (occurrence: None)
  Receive Date: 20080916
  Receipt Date: 20080908
  Transmission Date: 20090109
  Serious: Yes (Other)
  Sender: FDA-Public Use
  Company Number: US-ASTRAZENECA-2008UW18519

PATIENT
  Age: 71 Year
  Sex: Female

DRUGS (2)
  1. CRESTOR [Suspect]
     Indication: BLOOD CHOLESTEROL INCREASED
     Route: 048
  2. PLAVIX [Concomitant]
     Dates: end: 20080905

REACTIONS (9)
  - BLOOD CHOLESTEROL DECREASED [None]
  - CARDIAC MURMUR [None]
  - CHROMATURIA [None]
  - DYSURIA [None]
  - GAIT DISTURBANCE [None]
  - HAEMATURIA [None]
  - MUSCLE SPASMS [None]
  - NEPHROLITHIASIS [None]
  - THROMBOSIS [None]
